FAERS Safety Report 4361018-0 (Version None)
Quarter: 2004Q2

REPORT INFORMATION
  Report Type: 
  Country: None (occurrence: None)
  Receive Date: 20040517
  Receipt Date: 20040506
  Transmission Date: 20050107
  Serious: Yes (Hospitalization)
  Sender: FDA-Public Use
  Company Number: GB-JNJFOC-20040501182

PATIENT
  Age: 48 Year
  Sex: Male

DRUGS (9)
  1. REMICADE (INFLIXIMAB, RECOMBINANT) LYOPHILIZED POWDER [Suspect]
     Indication: RHEUMATOID ARTHRITIS
     Dosage: 210 MG, INTRAVENOUS
     Dates: start: 20040413, end: 20040413
  2. ALENDRONATE SODIUM [Concomitant]
  3. CALCICHEW (CALCIUM CARBONATE) [Concomitant]
  4. CO-PROXAMOL (APOREX) [Concomitant]
  5. PREDNISOLONE [Concomitant]
  6. METOCLOPRAMIDE [Concomitant]
  7. RANITIDINE [Concomitant]
  8. ZOPICLONE (ZOPICLONE) [Concomitant]
  9. DOTHIEPIN HYDROCHLORIDE [Concomitant]

REACTIONS (6)
  - ARTHRALGIA [None]
  - CHILLS [None]
  - COUGH [None]
  - FEELING COLD [None]
  - NAUSEA [None]
  - VOMITING [None]
